FAERS Safety Report 6301647-8 (Version None)
Quarter: 2009Q3

REPORT INFORMATION
  Report Type: 
  Country: None (occurrence: None)
  Receive Date: 20090807
  Receipt Date: 20090729
  Transmission Date: 20100115
  Serious: Yes (Other)
  Sender: FDA-Public Use
  Company Number: PHEH2009US07358

PATIENT
  Sex: Female

DRUGS (12)
  1. RECLAST [Suspect]
     Indication: OSTEOPOROSIS POSTMENOPAUSAL
     Dosage: 5 MG, ONCE/SINGLE
     Dates: start: 20090701, end: 20090701
  2. TOPROL-XL [Concomitant]
     Dosage: 10 MG, QD
  3. NORVASC [Concomitant]
     Dosage: 5 MG, QD
  4. EVISTA [Concomitant]
     Dosage: 60 MG, QD
  5. LEVOXYL [Concomitant]
     Dosage: 0.3 MG, QD
  6. CELEBREX [Concomitant]
     Dosage: 200 MG, QD
  7. PRILOSEC [Concomitant]
     Dosage: 30 MG, QD
  8. AMBIEN [Concomitant]
     Dosage: 12.5 MG, QD
  9. CRESTOR [Concomitant]
     Dosage: 5 MG, QD
  10. XANAX [Concomitant]
     Dosage: 0.25 MG, QD
  11. OCUVITE                            /01053801/ [Concomitant]
     Dosage: UNK, DAILY
  12. XALATAN [Concomitant]
     Indication: GLAUCOMA
     Dosage: UNK, UNK

REACTIONS (7)
  - EYE MOVEMENT DISORDER [None]
  - EYE PAIN [None]
  - EYELID DISORDER [None]
  - EYELID OEDEMA [None]
  - PAROPHTHALMIA [None]
  - PERIORBITAL OEDEMA [None]
  - VISUAL ACUITY REDUCED [None]
